FAERS Safety Report 17978456 (Version 2)
Quarter: 2020Q3

REPORT INFORMATION
  Report Type: Spontaneous
  Country: US (occurrence: US)
  Receive Date: 20200703
  Receipt Date: 20200703
  Transmission Date: 20201103
  Serious: Yes (Other)
  Sender: FDA-Public Use
  Company Number: US-AKRON, INC.-2087008

PATIENT
  Sex: Female

DRUGS (1)
  1. THERATEARS LUBRICANT EYE DROPS [Suspect]
     Active Substance: CARBOXYMETHYLCELLULOSE SODIUM
     Indication: DRY EYE
     Route: 047

REACTIONS (3)
  - Cardiac failure congestive [Unknown]
  - Dyspnoea [Unknown]
  - Hypoacusis [Unknown]
